FAERS Safety Report 4528950-6 (Version None)
Quarter: 2004Q4

REPORT INFORMATION
  Report Type: 
  Country: None (occurrence: None)
  Receive Date: 20041214
  Receipt Date: 20041202
  Transmission Date: 20050328
  Serious: Yes (Hospitalization)
  Sender: FDA-Public Use
  Company Number: BRO-007968

PATIENT
  Age: 75 Year
  Sex: Male

DRUGS (2)
  1. IOPAMIDOL [Suspect]
     Indication: COMPUTERISED TOMOGRAM
     Dosage: 100 ML IV
     Route: 042
     Dates: start: 20041115, end: 20041115
  2. IOPAMIDOL [Suspect]
     Indication: METASTASES TO LIVER
     Dosage: 100 ML IV
     Route: 042
     Dates: start: 20041115, end: 20041115

REACTIONS (7)
  - CARDIO-RESPIRATORY ARREST [None]
  - CHOKING [None]
  - CONTRAST MEDIA REACTION [None]
  - ERYTHEMA [None]
  - HYPOXIC ENCEPHALOPATHY [None]
  - LOSS OF CONSCIOUSNESS [None]
  - SHOCK [None]
